FAERS Safety Report 19002740 (Version 3)
Quarter: 2021Q2

REPORT INFORMATION
  Report Type: Spontaneous
  Country: US (occurrence: US)
  Receive Date: 20210312
  Receipt Date: 20210420
  Transmission Date: 20210717
  Serious: Yes (Other)
  Sender: FDA-Public Use
  Company Number: US-GILEAD-2021-0518744

PATIENT
  Age: 61 Year
  Sex: Male

DRUGS (8)
  1. DICLOFENAC POTASSIUM. [Concomitant]
     Active Substance: DICLOFENAC POTASSIUM
  2. BACLOFEN. [Concomitant]
     Active Substance: BACLOFEN
  3. EMGALITY [Concomitant]
     Active Substance: GALCANEZUMAB-GNLM
  4. GABAPENTIN. [Concomitant]
     Active Substance: GABAPENTIN
  5. VALACICLOVIR [Concomitant]
     Active Substance: VALACYCLOVIR HYDROCHLORIDE
  6. TIZANIDINE HYDROCHLORIDE. [Concomitant]
     Active Substance: TIZANIDINE HYDROCHLORIDE
  7. SOFOSBUVIR;VELPATASVIR [Suspect]
     Active Substance: SOFOSBUVIR\VELPATASVIR
     Indication: CHRONIC HEPATITIS C
     Dosage: 1 DOSAGE FORM, QD
     Route: 048
     Dates: start: 20210202
  8. TAMSULOSIN HYDROCHLORIDE. [Concomitant]
     Active Substance: TAMSULOSIN HYDROCHLORIDE

REACTIONS (4)
  - Muscle spasms [Recovered/Resolved with Sequelae]
  - Product dose omission issue [Unknown]
  - Dermatitis bullous [Not Recovered/Not Resolved]
  - Headache [Recovered/Resolved with Sequelae]

NARRATIVE: CASE EVENT DATE: 202102
